FAERS Safety Report 4751401-3 (Version None)
Quarter: 2005Q3

REPORT INFORMATION
  Report Type: 
  Country: None (occurrence: None)
  Receive Date: 20050822
  Receipt Date: 20050808
  Transmission Date: 20060218
  Serious: Yes (Hospitalization)
  Sender: FDA-Public Use
  Company Number: 2005112301

PATIENT
  Age: 87 Year
  Sex: Male

DRUGS (14)
  1. ESTRACYT (ESTRAMUSTINE PHOSPHATE SODIUM) [Suspect]
     Indication: PROSTATE CANCER
     Dosage: 280 MG, ORAL
     Route: 048
     Dates: start: 20050630, end: 20050711
  2. SODIUM SULFATE (SODIUM SULFATE) [Concomitant]
  3. PRANLUKAST (PRANLUKAST) [Concomitant]
  4. TULOBUTEROL  (TULOBUTEROL) [Concomitant]
  5. SPIRONOLACTONE [Concomitant]
  6. METILDIGOXIN (METILDIGOXIN) [Concomitant]
  7. KETOPROFEN [Concomitant]
  8. FUROSEMIDE [Concomitant]
  9. SENNOSIDE A (SENNOSIDE A) [Concomitant]
  10. ACETYLSALICYLIC ACID SRT [Concomitant]
  11. LEUPRORELIN ACETATE (LEUPRORELIN ACETATE) [Concomitant]
  12. PREDNISONE [Concomitant]
  13. NITROGLYCERIN [Concomitant]
  14. CHLORMADINONE ACETATE TAB [Concomitant]

REACTIONS (4)
  - ANAEMIA [None]
  - BLOOD BILIRUBIN INCREASED [None]
  - HEPATIC FUNCTION ABNORMAL [None]
  - JAUNDICE [None]
